FAERS Safety Report 4351145-6 (Version None)
Quarter: 2004Q2

REPORT INFORMATION
  Report Type: 
  Country: None (occurrence: None)
  Receive Date: 20040427
  Receipt Date: 20040415
  Transmission Date: 20050107
  Serious: Yes (Hospitalization)
  Sender: FDA-Public Use
  Company Number: SE-JNJFOC-20040301167

PATIENT
  Age: 77 Year
  Sex: Male

DRUGS (8)
  1. REMINYL [Suspect]
     Indication: DEMENTIA ALZHEIMER'S TYPE
     Dosage: 8 MG, 2 IN 1 DAY, ORAL
     Route: 048
     Dates: start: 20030820, end: 20040213
  2. TENORMIN [Suspect]
     Indication: HYPERTONIA
     Dosage: 25 MG, ORAL
     Route: 048
     Dates: start: 20020411, end: 20040213
  3. GLYTRIN (GLYCERYL TRINITRATE) UNKNOWN [Concomitant]
  4. SUSCARD (GLYCERYL TRINITRATE) [Concomitant]
  5. OXASCAND (OXAZEPAM) UNKNOWN [Concomitant]
  6. FLUNITRAZEPAM (FLUNITRAZEPAM) UNKNOWN [Concomitant]
  7. TROMBYL (ACETYLSALICYLIC ACID) TABLETS [Concomitant]
  8. ZESTORETIC (PRINZIDE) UNKNOWN [Concomitant]

REACTIONS (6)
  - CARDIAC ARREST [None]
  - DIZZINESS [None]
  - DRUG INTERACTION [None]
  - FACE INJURY [None]
  - SYNCOPE [None]
  - VOMITING [None]
